FAERS Safety Report 4478426-X (Version None)
Quarter: 2004Q4

REPORT INFORMATION
  Report Type: 
  Country: None (occurrence: None)
  Receive Date: 20041018
  Receipt Date: 20041018
  Transmission Date: 20050328
  Serious: Yes (Life-Threatening)
  Sender: FDA-Public Use
  Company Number: None

PATIENT
  Age: 38 Year
  Sex: Male
  Weight: 72.5755 kg

DRUGS (1)
  1. CELEXA [Suspect]
     Dosage: 1 DAY ORAL
     Route: 048
     Dates: start: 20020608, end: 20040808

REACTIONS (1)
  - SUICIDAL IDEATION [None]
